FAERS Safety Report 24835418 (Version 2)
Quarter: 2025Q1

REPORT INFORMATION
  Report Type: Report from Study
  Country: US (occurrence: US)
  Receive Date: 20250113
  Receipt Date: 20250124
  Transmission Date: 20250409
  Serious: Yes (Hospitalization)
  Sender: RECORDATI
  Company Number: AN-2025-00027

PATIENT

DRUGS (13)
  1. ISTURISA [Suspect]
     Active Substance: OSILODROSTAT PHOSPHATE
     Indication: Pituitary-dependent Cushing^s syndrome
     Dosage: 1 MG, QD
     Route: 048
     Dates: start: 20241206, end: 20241228
  2. ALLOPURINOL [Suspect]
     Active Substance: ALLOPURINOL
     Indication: Product used for unknown indication
     Dosage: 100 MG, QD, TABLET
     Route: 048
     Dates: start: 20161204
  3. AMLODIPINE BESYLATE [Suspect]
     Active Substance: AMLODIPINE BESYLATE
     Indication: Product used for unknown indication
     Dosage: 2.5 MG, BID (TABLET 2.5)
     Route: 048
     Dates: start: 20221204
  4. ATORVASTATIN CALCIUM [Suspect]
     Active Substance: ATORVASTATIN CALCIUM
     Indication: Product used for unknown indication
     Dosage: 80 MG, QD, TABLET
     Route: 048
     Dates: start: 20221204
  5. CALCITRIOL [Suspect]
     Active Substance: CALCITRIOL
     Indication: Product used for unknown indication
     Dosage: 0.25 MICROGRAM, QD, CAPSULE
     Route: 048
     Dates: start: 20231204
  6. CARVEDILOL [Suspect]
     Active Substance: CARVEDILOL
     Indication: Product used for unknown indication
     Dosage: 12.5 MG, BID, TABLET
     Route: 048
     Dates: start: 20231204
  7. ELIQUIS [Suspect]
     Active Substance: APIXABAN
     Indication: Product used for unknown indication
     Dosage: 5 MG, BID, TABLET
     Route: 048
     Dates: start: 20221204
  8. FARXIGA [Suspect]
     Active Substance: DAPAGLIFLOZIN PROPANEDIOL
     Indication: Product used for unknown indication
     Dosage: 5 MG, QD, TABLET
     Route: 048
     Dates: start: 20221204
  9. FUROSEMIDE [Suspect]
     Active Substance: FUROSEMIDE
     Indication: Product used for unknown indication
     Dosage: 40 MG, QD, TABLET
     Route: 048
     Dates: start: 20221204
  10. GLIMEPIRIDE [Suspect]
     Active Substance: GLIMEPIRIDE
     Indication: Product used for unknown indication
     Dosage: 0.5 MG, BID (TABLET 1 MG)
     Route: 048
     Dates: start: 20221204
  11. LOKELMA [Suspect]
     Active Substance: SODIUM ZIRCONIUM CYCLOSILICATE
     Indication: Product used for unknown indication
     Dosage: 5 GRAM, QD PACKET
     Route: 048
     Dates: start: 20221204
  12. MULTAQ [Suspect]
     Active Substance: DRONEDARONE
     Indication: Product used for unknown indication
     Dosage: 400 MG, BID, TABLET
     Route: 048
     Dates: start: 20231204
  13. PANTOPRAZOLE SODIUM [Suspect]
     Active Substance: PANTOPRAZOLE SODIUM
     Indication: Product used for unknown indication
     Dosage: 40 MG, QD PACKET 40
     Route: 048
     Dates: start: 20221204

REACTIONS (3)
  - Dyspnoea [Recovered/Resolved]
  - Renal impairment [Not Recovered/Not Resolved]
  - Off label use [Recovered/Resolved]

NARRATIVE: CASE EVENT DATE: 20241206
